FAERS Safety Report 12697628 (Version 1)
Quarter: 2016Q3

REPORT INFORMATION
  Report Type: Spontaneous
  Country: US (occurrence: None)
  Receive Date: 20160829
  Receipt Date: 20160829
  Transmission Date: 20161109
  Serious: Yes (Hospitalization, Disabling)
  Sender: FDA-Public Use
  Company Number: None

PATIENT
  Age: 71 Year
  Sex: Female
  Weight: 65.77 kg

DRUGS (11)
  1. ACETAMINOPHEN. [Concomitant]
     Active Substance: ACETAMINOPHEN
  2. HYDROCHLOROTHIAZIDE. [Concomitant]
     Active Substance: HYDROCHLOROTHIAZIDE
  3. CALCIUM/VITAMIN D3 [Concomitant]
  4. NEXIUM [Concomitant]
     Active Substance: ESOMEPRAZOLE MAGNESIUM
  5. PROLIA [Suspect]
     Active Substance: DENOSUMAB
     Indication: OSTEOPOROSIS PROPHYLAXIS
     Dosage: TWICE A YEAR INTO THE MUSCLE
     Route: 030
     Dates: start: 20160226, end: 20160819
  6. LORATADINE. [Concomitant]
     Active Substance: LORATADINE
  7. MULTI-VITAMINS [Concomitant]
  8. LOW-DOSE ASPIRIN [Concomitant]
     Active Substance: ASPIRIN
  9. LOSARTAN. [Concomitant]
     Active Substance: LOSARTAN
  10. SIMVASTATIN. [Concomitant]
     Active Substance: SIMVASTATIN
  11. MINERALS [Concomitant]
     Active Substance: MINERALS

REACTIONS (9)
  - Sleep disorder [None]
  - Dizziness [None]
  - Vomiting [None]
  - Abdominal pain upper [None]
  - Blood potassium decreased [None]
  - Vertigo [None]
  - Blood sodium decreased [None]
  - Nausea [None]
  - Back pain [None]

NARRATIVE: CASE EVENT DATE: 20160819
